FAERS Safety Report 18474328 (Version 3)
Quarter: 2020Q4

REPORT INFORMATION
  Report Type: Spontaneous
  Country: AR (occurrence: AR)
  Receive Date: 20201106
  Receipt Date: 20201229
  Transmission Date: 20210114
  Serious: Yes (Death, Hospitalization, Other)
  Sender: FDA-Public Use
  Company Number: AR-BAYER-2020-240894

PATIENT
  Age: 83 Year
  Sex: Male

DRUGS (5)
  1. XOFIGO [Suspect]
     Active Substance: RADIUM RA-223 DICHLORIDE
     Indication: METASTASES TO BONE
  2. PLENUR [DUTASTERIDE] [Concomitant]
     Active Substance: DUTASTERIDE
     Dosage: 1 DF, QD
     Route: 048
  3. XOFIGO [Suspect]
     Active Substance: RADIUM RA-223 DICHLORIDE
     Indication: PROSTATE CANCER STAGE IV
     Dosage: UNK
     Dates: start: 20201022, end: 20201022
  4. SERTRALINE [Concomitant]
     Active Substance: SERTRALINE HYDROCHLORIDE
     Dosage: 50 MG, QD
     Route: 048
  5. METHADONE [Concomitant]
     Active Substance: METHADONE HYDROCHLORIDE
     Dosage: 0.25 MG, TID

REACTIONS (8)
  - Cardio-respiratory arrest [Fatal]
  - Septic shock [None]
  - Cardiac failure [Recovered/Resolved]
  - Acute respiratory failure [None]
  - Multiple organ dysfunction syndrome [Fatal]
  - Respiratory distress [None]
  - Acute kidney injury [None]
  - Respiratory failure [Fatal]

NARRATIVE: CASE EVENT DATE: 20201023
